FAERS Safety Report 9934978 (Version 1)
Quarter: 2014Q1

REPORT INFORMATION
  Report Type: Report from Study
  Country: BR (occurrence: BR)
  Receive Date: 20140228
  Receipt Date: 20140228
  Transmission Date: 20141002
  Serious: Yes (Death, Other)
  Sender: FDA-Public Use
  Company Number: PHHY2014BR023984

PATIENT
  Age: 86 Year
  Sex: Male
  Weight: 75 kg

DRUGS (3)
  1. EXELON PATCH [Suspect]
     Indication: DEMENTIA ALZHEIMER^S TYPE
     Dosage: 01 DF, DAILY
     Route: 062
     Dates: start: 201203, end: 201205
  2. VITAMIN B12 [Concomitant]
     Indication: HYPOVITAMINOSIS
     Dosage: UNK UKN, UNK
     Dates: start: 201202, end: 201205
  3. FINASTERIDE [Concomitant]
     Dosage: UNK UKN, UNK
     Dates: start: 201202, end: 201205

REACTIONS (4)
  - Urosepsis [Fatal]
  - Aspiration [Fatal]
  - Bronchopneumonia [Fatal]
  - Sneezing [Unknown]
